FAERS Safety Report 23843366 (Version 3)
Quarter: 2024Q2

REPORT INFORMATION
  Report Type: Spontaneous
  Country: US (occurrence: US)
  Receive Date: 20240510
  Receipt Date: 20240605
  Transmission Date: 20240716
  Serious: Yes (Hospitalization)
  Sender: FDA-Public Use
  Company Number: US-ABBVIE-5753769

PATIENT
  Sex: Female

DRUGS (2)
  1. BOTOX COSMETIC [Suspect]
     Active Substance: ONABOTULINUMTOXINA
     Indication: Skin wrinkling
     Dosage: TIME INTERVAL: AS NECESSARY: 1 UNIT, TOTAL OF 19 UNITS?EVERY 3 TO 6 MONTHS
     Route: 065
     Dates: start: 20240426, end: 20240426
  2. BOTOX COSMETIC [Suspect]
     Active Substance: ONABOTULINUMTOXINA
     Indication: Skin wrinkling
     Dosage: TIME INTERVAL: AS NECESSARY: 3 UNIT, TOTAL OF 19 UNITS?EVERY 3 TO 6 MONTHS
     Route: 065
     Dates: start: 20240426, end: 20240426

REACTIONS (5)
  - Vision blurred [Unknown]
  - Diplopia [Unknown]
  - Off label use [Unknown]
  - Sinusitis [Unknown]
  - Arterial disorder [Unknown]

NARRATIVE: CASE EVENT DATE: 20240101
